FAERS Safety Report 6059687-2 (Version None)
Quarter: 2009Q1

REPORT INFORMATION
  Report Type: 
  Country: None (occurrence: None)
  Receive Date: 20090128
  Receipt Date: 20090123
  Transmission Date: 20090719
  Serious: Yes (Hospitalization)
  Sender: FDA-Public Use
  Company Number: ALL1-2009-00030

PATIENT
  Age: 6 Year
  Sex: Male
  Weight: 19.5 kg

DRUGS (2)
  1. DAYTRANA [Suspect]
     Indication: ATTENTION DEFICIT/HYPERACTIVITY DISORDER
     Dosage: 10 MG, 1X/DAY:QD, TRANSDERMAL
     Route: 062
     Dates: start: 20081226
  2. NUTROPIN [Concomitant]

REACTIONS (2)
  - PRODUCT QUALITY ISSUE [None]
  - SALMONELLOSIS [None]
